FAERS Safety Report 8230718-4 (Version None)
Quarter: 2012Q1

REPORT INFORMATION
  Report Type: 
  Country: None (occurrence: None)
  Receive Date: 20120322
  Receipt Date: 20120322
  Transmission Date: 20120608
  Serious: Yes (Other)
  Sender: FDA-Public Use
  Company Number: None

PATIENT
  Age: 7 Month
  Sex: Male
  Weight: 7 kg

DRUGS (1)
  1. JOHNSONS NATURAL H-T FOAM BABY WASH 9OZ [Suspect]
     Dosage: ONCE, TOPICAL
     Route: 061
     Dates: start: 20120311, end: 20120312

REACTIONS (5)
  - APPLICATION SITE ERYTHEMA [None]
  - SCRATCH [None]
  - APPLICATION SITE PRURITUS [None]
  - APPLICATION SITE WARMTH [None]
  - APPLICATION SITE RASH [None]
